FAERS Safety Report 18602087 (Version 1)
Quarter: 2020Q4

REPORT INFORMATION
  Report Type: Spontaneous
  Country: IN (occurrence: IN)
  Receive Date: 20201210
  Receipt Date: 20201210
  Transmission Date: 20210114
  Serious: Yes (Other)
  Sender: FDA-Public Use
  Company Number: NVSC2020IN327632

PATIENT
  Age: 50 Year
  Sex: Female

DRUGS (1)
  1. CERITINIB [Suspect]
     Active Substance: CERITINIB
     Indication: NON-SMALL CELL LUNG CANCER STAGE IIIB
     Dosage: UNK (MAINTENANCE AFTER SECOND LINE CHEMOTHERAPY)
     Route: 065

REACTIONS (1)
  - Hypothyroidism [Unknown]
